FAERS Safety Report 8165292-4 (Version None)
Quarter: 2012Q1

REPORT INFORMATION
  Report Type: 
  Country: None (occurrence: None)
  Receive Date: 20120227
  Receipt Date: 20120217
  Transmission Date: 20120608
  Serious: Yes (Other)
  Sender: FDA-Public Use
  Company Number: US-JNJFOC-20120211233

PATIENT
  Sex: Female
  Weight: 63.5 kg

DRUGS (11)
  1. CALCIUM [Concomitant]
     Indication: BONE DENSITY ABNORMAL
     Route: 048
  2. FENTANYL-100 [Suspect]
     Indication: MUSCULOSKELETAL DISORDER
     Route: 062
     Dates: start: 20100101, end: 20110101
  3. FENTANYL-100 [Suspect]
     Indication: BONE DISORDER
     Route: 062
     Dates: start: 20100101, end: 20110101
  4. FENTANYL-100 [Suspect]
     Indication: BONE DISORDER
     Route: 062
     Dates: start: 20110101
  5. LEVOTHYROXINE SODIUM [Concomitant]
     Indication: THYROID DISORDER
     Route: 048
  6. FENTANYL-100 [Suspect]
     Indication: HIP ARTHROPLASTY
     Route: 062
     Dates: start: 20100101, end: 20110101
  7. MUSCLE RELAXANT [Concomitant]
     Indication: PRODUCT USED FOR UNKNOWN INDICATION
     Route: 048
     Dates: start: 20090101
  8. FENTANYL-100 [Suspect]
     Indication: HIP ARTHROPLASTY
     Route: 062
     Dates: start: 20110101
  9. AN UNKNOWN MEDICATION [Concomitant]
     Indication: BLOOD CHOLESTEROL INCREASED
     Route: 048
     Dates: start: 20090101
  10. STOOL SOFTENER [Concomitant]
     Indication: CONSTIPATION
     Route: 048
     Dates: start: 20090101
  11. FENTANYL-100 [Suspect]
     Indication: MUSCULOSKELETAL DISORDER
     Route: 062
     Dates: start: 20110101

REACTIONS (4)
  - BRONCHITIS [None]
  - PRODUCT QUALITY ISSUE [None]
  - PRODUCT PACKAGING QUANTITY ISSUE [None]
  - DRUG DOSE OMISSION [None]
